FAERS Safety Report 10070791 (Version 1)
Quarter: 2014Q2

REPORT INFORMATION
  Report Type: Spontaneous
  Country: US (occurrence: None)
  Receive Date: 20140408
  Receipt Date: 20140408
  Transmission Date: 20141212
  Serious: Yes (Life-Threatening)
  Sender: FDA-Public Use
  Company Number: 001703766A

PATIENT
  Age: 17 Year
  Sex: Female

DRUGS (5)
  1. PROACTIV+ SKIN SMOOTHING EXFOLIATOR [Suspect]
     Indication: ACNE
     Dosage: TWICE DAILY DERMAL
     Dates: start: 20140301, end: 20140303
  2. PROACTIVE [Suspect]
     Indication: ACNE
     Dosage: TWICE DAILY DERMAL
     Dates: start: 20140301, end: 20140303
  3. PROACTIV+ COMPLEXION PERFECTING HYDRATOR [Suspect]
     Indication: ACNE
     Dosage: TWICE DAILY DERMAL
     Dates: start: 20140301, end: 20140303
  4. MIDOL [Concomitant]
  5. ALEVE [Concomitant]

REACTIONS (5)
  - Erythema [None]
  - Swelling [None]
  - Throat tightness [None]
  - Dermatitis contact [None]
  - Hypersensitivity [None]
